FAERS Safety Report 22108775 (Version 1)
Quarter: 2023Q1

REPORT INFORMATION
  Report Type: Spontaneous
  Country: NL (occurrence: NL)
  Receive Date: 20230317
  Receipt Date: 20230317
  Transmission Date: 20230418
  Serious: Yes (Hospitalization, Other)
  Sender: FDA-Public Use
  Company Number: None

PATIENT
  Sex: Male
  Weight: 58 kg

DRUGS (1)
  1. TRAMADOL [Suspect]
     Active Substance: TRAMADOL
     Indication: Toothache
     Dosage: 50 MILLIGRAM, Q8H (3X PER DAY 50 MG)
     Route: 065
     Dates: start: 20170305, end: 20221217

REACTIONS (3)
  - Drug dependence [Recovering/Resolving]
  - Euphoric mood [Recovering/Resolving]
  - Mood swings [Not Recovered/Not Resolved]
